FAERS Safety Report 6469519-6 (Version None)
Quarter: 2009Q4

REPORT INFORMATION
  Report Type: 
  Country: None (occurrence: None)
  Receive Date: 20091203
  Receipt Date: 20091124
  Transmission Date: 20100525
  Serious: Yes (Other)
  Sender: FDA-Public Use
  Company Number: US-PFIZER INC-2009303377

PATIENT

DRUGS (1)
  1. LIPITOR [Suspect]
     Dosage: 40 MG
     Dates: start: 20010101

REACTIONS (1)
  - PANCREATITIS [None]
